FAERS Safety Report 5570208-0 (Version None)
Quarter: 2007Q4

REPORT INFORMATION
  Report Type: 
  Country: None (occurrence: None)
  Receive Date: 20071217
  Receipt Date: 20071203
  Transmission Date: 20080405
  Serious: Yes (Life-Threatening)
  Sender: FDA-Public Use
  Company Number: 8027203

PATIENT
  Sex: Female
  Weight: 53 kg

DRUGS (2)
  1. KEPPRA [Suspect]
     Indication: GRAND MAL CONVULSION
     Dosage: 1000 MG 2/D PO
     Route: 048
     Dates: start: 20070917
  2. VITAMIN B-12 [Concomitant]

REACTIONS (1)
  - PANCYTOPENIA [None]
